FAERS Safety Report 18345754 (Version 1)
Quarter: 2020Q4

REPORT INFORMATION
  Report Type: Spontaneous
  Country: HU (occurrence: HU)
  Receive Date: 20201005
  Receipt Date: 20201005
  Transmission Date: 20210114
  Serious: Yes (Death, Hospitalization, Other)
  Sender: FDA-Public Use
  Company Number: HU-JNJFOC-20200951987

PATIENT
  Age: 84 Year
  Sex: Male

DRUGS (2)
  1. TRAMADOL HYDROCHLORIDE. [Suspect]
     Active Substance: TRAMADOL HYDROCHLORIDE
     Indication: PRODUCT USED FOR UNKNOWN INDICATION
     Dosage: UNK
     Route: 048
  2. MIDAZOLAM. [Suspect]
     Active Substance: MIDAZOLAM
     Indication: PRODUCT USED FOR UNKNOWN INDICATION
     Dosage: UNK
     Route: 048

REACTIONS (14)
  - Gastrointestinal sounds abnormal [Unknown]
  - Anaemia [Unknown]
  - Abdominal pain [Unknown]
  - Pneumonia [Unknown]
  - Vomiting [Unknown]
  - Cardiac failure [Fatal]
  - Respiratory failure [Unknown]
  - Blood lactic acid increased [Unknown]
  - Electrolyte imbalance [Unknown]
  - Drug abuse [Unknown]
  - Pleural effusion [Unknown]
  - Blood glucose increased [Unknown]
  - Blood urea increased [Unknown]
  - Blood creatinine increased [Unknown]
